FAERS Safety Report 9491125 (Version 1)
Quarter: 2013Q3

REPORT INFORMATION
  Report Type: Spontaneous
  Country: ES (occurrence: ES)
  Receive Date: 20130830
  Receipt Date: 20130830
  Transmission Date: 20140515
  Serious: Yes (Death)
  Sender: FDA-Public Use
  Company Number: ES-ASTELLAS-2013US008981

PATIENT
  Age: 46 Year
  Sex: Female

DRUGS (4)
  1. AMBISOME [Suspect]
     Indication: ZYGOMYCOSIS
     Dosage: 1.5 MG/KG, UID/QD
     Route: 065
  2. AMBISOME [Suspect]
     Dosage: 3 MG/KG, UID/QD
     Route: 065
  3. PIPERACILLIN AND TAZOBACTAM [Concomitant]
     Indication: PRODUCT USED FOR UNKNOWN INDICATION
     Dosage: UNK
     Route: 065
  4. NORADRENALINE                      /00127501/ [Concomitant]
     Indication: PRODUCT USED FOR UNKNOWN INDICATION
     Dosage: UNK
     Route: 065

REACTIONS (1)
  - Drug ineffective for unapproved indication [Fatal]
